APPROVED DRUG PRODUCT: NYSTATIN
Active Ingredient: NYSTATIN
Strength: 100,000 UNITS/GM
Dosage Form/Route: CREAM;TOPICAL
Application: A064022 | Product #001 | TE Code: AT
Applicant: SUN PHARMA CANADA INC
Approved: Jan 29, 1993 | RLD: No | RS: Yes | Type: RX